FAERS Safety Report 5474010-X (Version None)
Quarter: 2007Q4

REPORT INFORMATION
  Report Type: 
  Country: None (occurrence: None)
  Receive Date: 20071002
  Receipt Date: 20070926
  Transmission Date: 20080405
  Serious: Yes (Death)
  Sender: FDA-Public Use
  Company Number: PHEH2007US12274

PATIENT
  Age: 76 Year
  Sex: Male
  Weight: 71.882 kg

DRUGS (6)
  1. FORADIL [Suspect]
     Indication: CHRONIC OBSTRUCTIVE PULMONARY DISEASE
     Dosage: 9 MG, BID
     Dates: start: 20030624, end: 20051018
  2. SPIRIVA [Concomitant]
  3. XOPENEX [Concomitant]
  4. ALLEGRA [Concomitant]
     Dosage: 180 MG, QD
     Route: 048
  5. QVAR 40 [Concomitant]
     Dosage: 80 MG, BID
  6. COUMADIN [Concomitant]

REACTIONS (1)
  - DEATH [None]
